FAERS Safety Report 24684466 (Version 1)
Quarter: 2024Q4

REPORT INFORMATION
  Report Type: Spontaneous
  Country: FR (occurrence: FR)
  Receive Date: 20241202
  Receipt Date: 20241202
  Transmission Date: 20250115
  Serious: Yes (Other)
  Sender: AUROBINDO
  Company Number: FR-AFSSAPS-GR2024001400

PATIENT
  Age: 61 Year
  Sex: Female

DRUGS (2)
  1. IRBESARTAN [Suspect]
     Active Substance: IRBESARTAN
     Indication: Hypertension
     Dosage: 150 MILLIGRAM, ONCE A DAY
     Route: 048
     Dates: start: 202402, end: 202409
  2. HYDROCHLOROTHIAZIDE [Suspect]
     Active Substance: HYDROCHLOROTHIAZIDE
     Indication: Hypertension
     Dosage: 12.5 MILLIGRAM, ONCE A DAY
     Route: 048
     Dates: start: 202402, end: 202409

REACTIONS (1)
  - Colitis [Recovering/Resolving]

NARRATIVE: CASE EVENT DATE: 20240601
